FAERS Safety Report 26117889 (Version 1)
Quarter: 2025Q4

REPORT INFORMATION
  Report Type: Spontaneous
  Country: US (occurrence: None)
  Receive Date: 20251203
  Receipt Date: 20251203
  Transmission Date: 20260117
  Serious: Yes (Other)
  Sender: FDA-CTU
  Company Number: None

PATIENT
  Age: 35 Year
  Sex: Female
  Weight: 59 kg

DRUGS (1)
  1. WILATE - VON WILLEBRAND FACTOR/COAGULATION FACTOR VIII COMPLEX (HUMAN) [Suspect]
     Active Substance: HUMAN COAGULATION FACTOR VIII/VON WILLEBRAND FACTOR COMPLEX
     Indication: Von Willebrand^s disease
     Dosage: 2000 IU INTERNATIONAL UNIT(S) AS NEEDED INTRAVENOUS?
     Route: 042
     Dates: start: 20251113

REACTIONS (5)
  - Infusion related reaction [None]
  - Flushing [None]
  - Feeling hot [None]
  - Speech disorder [None]
  - Therapy cessation [None]

NARRATIVE: CASE EVENT DATE: 20251113
